FAERS Safety Report 14676454 (Version 1)
Quarter: 2018Q1

REPORT INFORMATION
  Report Type: Spontaneous
  Country: US (occurrence: US)
  Receive Date: 20180323
  Receipt Date: 20180323
  Transmission Date: 20180509
  Serious: Yes (Other)
  Sender: FDA-Public Use
  Company Number: US-BRISTOL-MYERS SQUIBB COMPANY-BMS-2018-025663

PATIENT
  Sex: Female
  Weight: 70.3 kg

DRUGS (3)
  1. GABAPENTIN. [Concomitant]
     Active Substance: GABAPENTIN
     Indication: PRODUCT USED FOR UNKNOWN INDICATION
     Dosage: UNK
     Route: 065
  2. FISH OIL [Concomitant]
     Active Substance: FISH OIL
     Indication: PRODUCT USED FOR UNKNOWN INDICATION
     Dosage: UNK
     Route: 065
  3. ELIQUIS [Suspect]
     Active Substance: APIXABAN
     Indication: PULMONARY EMBOLISM
     Dosage: 2.5 MG, BID
     Route: 048
     Dates: start: 2017, end: 201803

REACTIONS (17)
  - Back pain [Unknown]
  - Feeling abnormal [Unknown]
  - Contusion [Unknown]
  - Chest pain [Unknown]
  - Haemorrhage [Unknown]
  - Amnesia [Unknown]
  - Parathyroid gland enlargement [Unknown]
  - Aphasia [Unknown]
  - Abdominal pain upper [Unknown]
  - Haemoglobin decreased [Unknown]
  - Insomnia [Unknown]
  - Gastrointestinal disorder [Unknown]
  - Weight decreased [Unknown]
  - Hypersomnia [Unknown]
  - Depressed level of consciousness [Unknown]
  - Anxiety [Unknown]
  - Confusional state [Unknown]
